FAERS Safety Report 5527405-X (Version None)
Quarter: 2007Q4

REPORT INFORMATION
  Report Type: 
  Country: None (occurrence: None)
  Receive Date: 20071123
  Receipt Date: 20071108
  Transmission Date: 20080405
  Serious: Yes (Death, Hospitalization)
  Sender: FDA-Public Use
  Company Number: 2005BI002496

PATIENT
  Age: 68 Year
  Sex: Female

DRUGS (13)
  1. NATALIZUMAB [Suspect]
     Indication: MULTIPLE SCLEROSIS
     Dosage: 300 MG; QM; IV
     Route: 042
     Dates: start: 20050103
  2. AVONEX [Concomitant]
  3. AVONEX [Concomitant]
  4. PAXIL [Concomitant]
  5. FLONASE [Concomitant]
  6. URISPAS [Concomitant]
  7. VITAMIN E [Concomitant]
  8. ASCORBIC ACID [Concomitant]
  9. VITAMIN CAP [Concomitant]
  10. CITRACAL [Concomitant]
  11. GLUCOSAMINE [Concomitant]
  12. HYDROCHLOROTHIAZIDE [Concomitant]
  13. NEURONTIN [Concomitant]

REACTIONS (2)
  - BEDRIDDEN [None]
  - OVARIAN CANCER [None]
